FAERS Safety Report 9118776 (Version 1)
Quarter: 2013Q1

REPORT INFORMATION
  Report Type: Spontaneous
  Country: PT (occurrence: PT)
  Receive Date: 20130226
  Receipt Date: 20130226
  Transmission Date: 20140127
  Serious: Yes (Other)
  Sender: FDA-Public Use
  Company Number: PT-009507513-1302PRT007353

PATIENT
  Age: 50 Year
  Sex: Female

DRUGS (3)
  1. ZOCOR [Suspect]
     Indication: HYPERCHOLESTEROLAEMIA
     Dosage: UNK
     Route: 048
     Dates: start: 200502
  2. FOSAVANCE [Concomitant]
     Route: 048
  3. GLUCOBAY [Concomitant]

REACTIONS (5)
  - Oesophageal pain [Recovered/Resolved]
  - Product taste abnormal [Unknown]
  - Self-induced vomiting [Unknown]
  - Malaise [Recovered/Resolved]
  - Dyspepsia [Recovered/Resolved]
